FAERS Safety Report 9434768 (Version 5)
Quarter: 2013Q4

REPORT INFORMATION
  Report Type: Spontaneous
  Country: US (occurrence: US)
  Receive Date: 20130801
  Receipt Date: 20131223
  Transmission Date: 20140711
  Serious: Yes (Hospitalization, Other)
  Sender: FDA-Public Use
  Company Number: US-PFIZER INC-2013219920

PATIENT
  Age: 57 Year
  Sex: Male
  Weight: 78.46 kg

DRUGS (11)
  1. VIAGRA [Suspect]
     Indication: ERECTILE DYSFUNCTION
     Dosage: 50 MG (HALF OF 100 MG TABLET), AS NEEDED
     Route: 048
  2. VIAGRA [Suspect]
     Indication: POOR PERIPHERAL CIRCULATION
     Dosage: 50 MG, ALTERNATE DAY (EVERY OTHER DAY)
     Route: 048
     Dates: start: 2013
  3. VIAGRA [Suspect]
     Dosage: UNK
  4. VIAGRA [Suspect]
     Dosage: 50 MG, ALTERNATE DAY
     Dates: start: 2013
  5. LORTAB [Concomitant]
     Dosage: 650/10MG, 4X/DAY
  6. VALIUM [Concomitant]
     Dosage: 10 MG, 3X/DAY
  7. FLEXERIL [Concomitant]
     Dosage: 10 MG, 3X/DAY
  8. FENOFIBRATE [Concomitant]
     Indication: BLOOD CHOLESTEROL ABNORMAL
     Dosage: 160 MG, DAILY
  9. ZOLPIDEM [Concomitant]
     Indication: SLEEP DISORDER
     Dosage: 10 MG, DAILY AT BED TIME
  10. CENTRUM SILVER MEN^S 50+ [Concomitant]
     Dosage: 1 DF, 1X/DAY
  11. HYDROCODONE/APAP [Concomitant]
     Indication: BACK DISORDER
     Dosage: HYDROCODONE(10MG), APAP(650MG), UNK

REACTIONS (4)
  - Prostate cancer [Unknown]
  - Skin cancer [Unknown]
  - Meniscus injury [Unknown]
  - Prostatic specific antigen abnormal [Unknown]
